FAERS Safety Report 10466945 (Version 1)
Quarter: 2014Q3

REPORT INFORMATION
  Report Type: Spontaneous
  Country: CH (occurrence: CH)
  Receive Date: 20140922
  Receipt Date: 20140922
  Transmission Date: 20150326
  Serious: Yes (Other)
  Sender: FDA-Public Use
  Company Number: PHHY2014CH121578

PATIENT
  Age: 51 Year
  Sex: Female

DRUGS (3)
  1. ZOLEDRONATE [Suspect]
     Active Substance: ZOLEDRONIC ACID
     Indication: NEUROPATHIC ARTHROPATHY
     Dosage: 4 MG, QMO
  2. BORTEZOMIB [Suspect]
     Active Substance: BORTEZOMIB
     Indication: NEUROPATHIC ARTHROPATHY
     Dosage: 1.3 MG/M2, QW
  3. DEXAMETHASONE. [Suspect]
     Active Substance: DEXAMETHASONE
     Indication: NEUROPATHIC ARTHROPATHY
     Dosage: 40 MG, QW

REACTIONS (2)
  - Gait disturbance [Unknown]
  - Disease progression [Unknown]
